FAERS Safety Report 16155192 (Version 1)
Quarter: 2019Q2

REPORT INFORMATION
  Report Type: Spontaneous
  Country: ZA (occurrence: ZA)
  Receive Date: 20190403
  Receipt Date: 20190403
  Transmission Date: 20190711
  Serious: Yes (Death, Hospitalization)
  Sender: FDA-Public Use
  Company Number: ZA-NOVOPROD-655075

PATIENT
  Age: 43 Year
  Sex: Male

DRUGS (1)
  1. NOVOMIX 30 FLEXPEN [Suspect]
     Active Substance: INSULIN ASPART
     Indication: DIABETES MELLITUS
     Dosage: UNK
     Route: 065

REACTIONS (1)
  - Diabetic ketoacidosis [Fatal]
